FAERS Safety Report 26120620 (Version 1)
Quarter: 2025Q4

REPORT INFORMATION
  Report Type: Other
  Country: CN (occurrence: CN)
  Receive Date: 20251204
  Receipt Date: 20251204
  Transmission Date: 20260118
  Serious: Yes (Life-Threatening, Hospitalization)
  Sender: PARATEK PHARMACEUTICALS
  Company Number: CN-PARATEK PHARMACEUTICALS, INC.-2025PTK01795

PATIENT
  Age: 20 Year
  Sex: Female
  Weight: 36 kg

DRUGS (2)
  1. NUZYRA [Suspect]
     Active Substance: OMADACYCLINE
     Indication: Infective exacerbation of bronchiectasis
     Dosage: 0.2 G, 1X/DAY
     Route: 041
     Dates: start: 20251118, end: 20251118
  2. NUZYRA [Suspect]
     Active Substance: OMADACYCLINE
     Dosage: 0.1 G, 1X/DAY
     Route: 041
     Dates: start: 20251119, end: 20251119

REACTIONS (5)
  - Hypoaesthesia oral [Recovering/Resolving]
  - Dysarthria [Recovering/Resolving]
  - Pallor [Recovering/Resolving]
  - Pruritus [Recovering/Resolving]
  - Hyperhidrosis [Recovering/Resolving]

NARRATIVE: CASE EVENT DATE: 20251119
